FAERS Safety Report 16744937 (Version 1)
Quarter: 2019Q3

REPORT INFORMATION
  Report Type: Spontaneous
  Country: DE (occurrence: DE)
  Receive Date: 20190827
  Receipt Date: 20190827
  Transmission Date: 20191005
  Serious: Yes (Other)
  Sender: FDA-Public Use
  Company Number: DE-SA-2019SA227794

PATIENT
  Age: 70 Year
  Sex: Male
  Weight: 90.2 kg

DRUGS (1)
  1. ZALTRAP [Suspect]
     Active Substance: ZIV-AFLIBERCEPT
     Indication: COLON CANCER
     Dosage: 4 MG/KG
     Route: 042
     Dates: start: 20190708, end: 20190804

REACTIONS (3)
  - Hypertension [Not Recovered/Not Resolved]
  - Glomerulonephritis membranous [Not Recovered/Not Resolved]
  - Proteinuria [Not Recovered/Not Resolved]

NARRATIVE: CASE EVENT DATE: 20190805
